FAERS Safety Report 13628548 (Version 3)
Quarter: 2017Q3

REPORT INFORMATION
  Report Type: Spontaneous
  Country: BR (occurrence: BR)
  Receive Date: 20170608
  Receipt Date: 20170717
  Transmission Date: 20171127
  Serious: Yes (Death, Hospitalization, Other)
  Sender: FDA-Public Use
  Company Number: BR-BIOMARINAP-BR-2017-113371

PATIENT
  Sex: Female
  Weight: 22.5 kg

DRUGS (4)
  1. NAGLAZYME [Suspect]
     Active Substance: GALSULFASE
     Dosage: 20 MG, QW
     Route: 042
  2. CAPTOPRIL. [Concomitant]
     Active Substance: CAPTOPRIL
     Indication: BLOOD PRESSURE MEASUREMENT
     Dosage: 25 MG, TID
  3. NAGLAZYME [Suspect]
     Active Substance: GALSULFASE
     Indication: MUCOPOLYSACCHARIDOSIS VI
     Dosage: 25 MG, QW
     Route: 042
     Dates: start: 20170104
  4. NAGLAZYME [Suspect]
     Active Substance: GALSULFASE
     Dosage: 25 MG, QW
     Route: 042
     Dates: start: 20080930

REACTIONS (9)
  - Spinal cord haematoma [Unknown]
  - Gait disturbance [Unknown]
  - Post procedural complication [Unknown]
  - Loss of consciousness [Unknown]
  - Walking disability [Not Recovered/Not Resolved]
  - Brain death [Fatal]
  - Cardiac arrest [Unknown]
  - Spinal cord compression [Not Recovered/Not Resolved]
  - Swelling face [Unknown]
